FAERS Safety Report 5883018-1 (Version None)
Quarter: 2008Q3

REPORT INFORMATION
  Report Type: 
  Country: None (occurrence: None)
  Receive Date: 20080913
  Receipt Date: 20080825
  Transmission Date: 20090109
  Serious: No
  Sender: FDA-Public Use
  Company Number: US-ABBOTT-08P-163-0472503-00

PATIENT
  Sex: Female
  Weight: 91.254 kg

DRUGS (4)
  1. HUMIRA [Suspect]
     Indication: CROHN'S DISEASE
     Route: 058
     Dates: start: 20080701
  2. MESALAMINE [Concomitant]
     Indication: CROHN'S DISEASE
     Dosage: 4 TABS DAILY
     Route: 048
  3. COLESTIPOL HYDROCHLORIDE [Concomitant]
     Indication: CROHN'S DISEASE
     Dosage: 4 TABS DAILY
     Route: 048
  4. ESTROGENS CONJUGATED [Concomitant]
     Indication: HORMONE REPLACEMENT THERAPY
     Dosage: 1 TAB DAILY
     Route: 048

REACTIONS (4)
  - ANOREXIA [None]
  - INSOMNIA [None]
  - PYREXIA [None]
  - VOMITING [None]
